FAERS Safety Report 18495265 (Version 2)
Quarter: 2020Q4

REPORT INFORMATION
  Report Type: Spontaneous
  Country: CN (occurrence: CN)
  Receive Date: 20201112
  Receipt Date: 20201116
  Transmission Date: 20210114
  Serious: Yes (Hospitalization)
  Sender: FDA-Public Use
  Company Number: CN-009507513-2011CHN007252

PATIENT
  Age: 52 Year
  Sex: Female
  Weight: 55 kg

DRUGS (2)
  1. SODIUM CHLORIDE. [Concomitant]
     Active Substance: SODIUM CHLORIDE
     Dosage: 100 MILLILITER, ONCE; MANUFACTURER: SICHUAN KELUN PHARMACEUTICAL CO., LTD.; MEDICATION REASON: SOLVE
     Route: 041
     Dates: start: 20200828, end: 20200828
  2. KEYTRUDA [Suspect]
     Active Substance: PEMBROLIZUMAB
     Indication: METASTATIC MALIGNANT MELANOMA
     Dosage: 200 MILLIGRAM, ONCE; FORMULATION REPORTED AS POWDER FOR INJECTION
     Route: 041
     Dates: start: 20200828, end: 20200828

REACTIONS (3)
  - Skin haemorrhage [Unknown]
  - Drug eruption [Recovering/Resolving]
  - Scratch [Unknown]

NARRATIVE: CASE EVENT DATE: 202009
